FAERS Safety Report 9437763 (Version 1)
Quarter: 2013Q3

REPORT INFORMATION
  Report Type: Spontaneous
  Country: US (occurrence: US)
  Receive Date: 20130802
  Receipt Date: 20130802
  Transmission Date: 20140515
  Serious: No
  Sender: FDA-Public Use
  Company Number: US-BRISTOL-MYERS SQUIBB COMPANY-17418898

PATIENT
  Age: 81 Year
  Sex: Female

DRUGS (4)
  1. COUMADIN TABS 5 MG [Suspect]
     Indication: CEREBROVASCULAR ACCIDENT
     Dates: start: 20121210
  2. COREG [Concomitant]
     Dates: start: 201209
  3. AVALIDE [Concomitant]
  4. TIAZAC [Concomitant]

REACTIONS (2)
  - Rash [Unknown]
  - Rhinorrhoea [Unknown]
